FAERS Safety Report 6003615-2 (Version None)
Quarter: 2008Q4

REPORT INFORMATION
  Report Type: 
  Country: None (occurrence: None)
  Receive Date: 20081216
  Receipt Date: 20081204
  Transmission Date: 20090506
  Serious: Yes (Hospitalization)
  Sender: FDA-Public Use
  Company Number: ES-PFIZER INC-2008026618

PATIENT

DRUGS (4)
  1. SUNITINIB MALATE [Suspect]
     Indication: BREAST CANCER
     Dosage: 37.5 MG, 1X/DAY
     Route: 048
     Dates: start: 20080228, end: 20080315
  2. *CAPECITABINE [Suspect]
     Indication: BREAST CANCER
     Dosage: 4000 MG, 1X/DAY
     Route: 048
     Dates: start: 20071004, end: 20080206
  3. VALS [Concomitant]
  4. NEXIUM [Concomitant]

REACTIONS (1)
  - DISORIENTATION [None]
